FAERS Safety Report 22234302 (Version 1)
Quarter: 2023Q2

REPORT INFORMATION
  Report Type: Spontaneous
  Country: US (occurrence: US)
  Receive Date: 20230420
  Receipt Date: 20230420
  Transmission Date: 20230722
  Serious: No
  Sender: FDA-Public Use
  Company Number: US-BAYER-2023A050698

PATIENT
  Age: 40 Year
  Sex: Female

DRUGS (5)
  1. MIRENA [Suspect]
     Active Substance: LEVONORGESTREL
     Dosage: 20?G/DAY
     Route: 015
  2. CLOBETASOL [Concomitant]
     Active Substance: CLOBETASOL
  3. PHENTERMINE [Concomitant]
     Active Substance: PHENTERMINE
  4. VENTOLIN HFA [Concomitant]
     Active Substance: ALBUTEROL SULFATE
  5. KETOCONAZOLE [Concomitant]
     Active Substance: KETOCONAZOLE

REACTIONS (9)
  - Urinary incontinence [None]
  - Weight decreased [None]
  - Rash [None]
  - Rash pruritic [None]
  - Erythema [None]
  - Gastrooesophageal reflux disease [None]
  - Anxiety [None]
  - Depression [None]
  - Skin disorder [None]

NARRATIVE: CASE EVENT DATE: 20230301
